FAERS Safety Report 7612755-3 (Version None)
Quarter: 2011Q2

REPORT INFORMATION
  Report Type: 
  Country: None (occurrence: None)
  Receive Date: 20110630
  Receipt Date: 20110617
  Transmission Date: 20111010
  Serious: No
  Sender: FDA-Public Use
  Company Number: CA-144987

PATIENT
  Sex: Female
  Weight: 91 kg

DRUGS (5)
  1. WINRHO [Suspect]
  2. WINRHO [Suspect]
     Indication: THROMBOCYTOPENIC PURPURA
     Dosage: 120 UG INTRAVENOUS, 300 UG INTRAVENOUS, 4000 UG INTRAVENOUS
     Route: 042
     Dates: start: 20100528, end: 20100528
  3. WINRHO [Suspect]
     Indication: THROMBOCYTOPENIC PURPURA
     Dosage: 120 UG INTRAVENOUS, 300 UG INTRAVENOUS, 4000 UG INTRAVENOUS
     Route: 042
     Dates: start: 20100528, end: 20100528
  4. WINRHO [Suspect]
     Indication: THROMBOCYTOPENIC PURPURA
     Dosage: 120 UG INTRAVENOUS, 300 UG INTRAVENOUS, 4000 UG INTRAVENOUS
     Route: 042
     Dates: start: 20100528, end: 20100528
  5. WINRHO [Suspect]

REACTIONS (14)
  - PRURITUS [None]
  - BLOOD BILIRUBIN INCREASED [None]
  - INFUSION RELATED REACTION [None]
  - HEADACHE [None]
  - NAUSEA [None]
  - BACK PAIN [None]
  - BLOOD LACTATE DEHYDROGENASE INCREASED [None]
  - HAEMOLYSIS [None]
  - BLOOD PRESSURE INCREASED [None]
  - TACHYCARDIA [None]
  - HOT FLUSH [None]
  - CHILLS [None]
  - ABDOMINAL PAIN UPPER [None]
  - BILIRUBIN CONJUGATED INCREASED [None]
